FAERS Safety Report 14733349 (Version 1)
Quarter: 2018Q2

REPORT INFORMATION
  Report Type: Spontaneous
  Country: US (occurrence: US)
  Receive Date: 20180409
  Receipt Date: 20180409
  Transmission Date: 20180711
  Serious: Yes (Other)
  Sender: FDA-Public Use
  Company Number: US-AMGEN-USASP2018046964

PATIENT
  Sex: Male

DRUGS (1)
  1. VECTIBIX [Suspect]
     Active Substance: PANITUMUMAB
     Indication: COLORECTAL CANCER
     Dosage: UNK
     Route: 065

REACTIONS (5)
  - Chills [Unknown]
  - Blood pressure abnormal [Unknown]
  - Oxygen saturation abnormal [Unknown]
  - Heart rate abnormal [Unknown]
  - Neck pain [Unknown]

NARRATIVE: CASE EVENT DATE: 20180404
